FAERS Safety Report 5214251-X (Version None)
Quarter: 2007Q1

REPORT INFORMATION
  Report Type: 
  Country: None (occurrence: None)
  Receive Date: 20070122
  Receipt Date: 20070116
  Transmission Date: 20070707
  Serious: Yes (Death)
  Sender: FDA-Public Use
  Company Number: 2007AP00483

PATIENT
  Age: 69 Year
  Sex: Male

DRUGS (13)
  1. ANAPEINE [Suspect]
     Indication: EPIDURAL ANAESTHESIA
     Route: 008
     Dates: start: 20030521, end: 20030521
  2. FENTANEST [Concomitant]
     Indication: GENERAL ANAESTHESIA
     Dates: start: 20030521, end: 20030521
  3. HALOPERIDOL [Concomitant]
     Indication: SEDATION
     Dates: start: 20030521, end: 20030521
  4. RIVOTRIL [Concomitant]
     Indication: SEDATION
     Dates: start: 20030521, end: 20030521
  5. ALEVIATIN [Concomitant]
     Indication: SEDATION
     Dates: start: 20030521, end: 20030521
  6. PHENOBARBITAL TAB [Concomitant]
     Indication: SEDATION
     Dates: start: 20030521, end: 20030521
  7. ANNACA [Concomitant]
     Indication: SEDATION
     Dates: start: 20030521, end: 20030521
  8. HIRNAMIN [Concomitant]
     Indication: SEDATION
     Dates: start: 20030521, end: 20030521
  9. HIRNAMIN [Concomitant]
     Dates: start: 20030521, end: 20030521
  10. CERCINE [Concomitant]
     Indication: SEDATION
     Dates: start: 20030521, end: 20030521
  11. CERCINE [Concomitant]
     Dates: start: 20030521, end: 20030521
  12. HIBERNA [Concomitant]
     Indication: SEDATION
     Dates: start: 20030521, end: 20030521
  13. HIBERNA [Concomitant]
     Dates: start: 20030521, end: 20030521

REACTIONS (3)
  - CARDIAC ARREST [None]
  - DEPRESSED LEVEL OF CONSCIOUSNESS [None]
  - LIVER DISORDER [None]
